FAERS Safety Report 5814793-X (Version None)
Quarter: 2008Q3

REPORT INFORMATION
  Report Type: 
  Country: None (occurrence: None)
  Receive Date: 20080715
  Receipt Date: 20080625
  Transmission Date: 20090109
  Serious: Yes (Death, Other)
  Sender: FDA-Public Use
  Company Number: CLOF-1000195

PATIENT
  Age: 21 Year
  Sex: Male

DRUGS (21)
  1. CLOFARABINE (CLOFARABINE) SOLUTION FOR INFUSION [Suspect]
     Indication: ACUTE LYMPHOCYTIC LEUKAEMIA
     Dosage: 65 MG, QDX5, INTRAVENOUS
     Route: 042
     Dates: start: 20080212, end: 20080216
  2. CYCLOPHOSPHAMIDE [Suspect]
     Indication: ACUTE LYMPHOCYTIC LEUKAEMIA
     Dosage: 580 MG, QDX5,
     Dates: start: 20080212, end: 20080216
  3. ETOPOSIDE [Suspect]
     Indication: ACUTE LYMPHOCYTIC LEUKAEMIA
     Dosage: 165 MG, QDX5,
     Dates: start: 20080212, end: 20080216
  4. HEPARIN [Concomitant]
  5. ONDANSETRON HYDROCHLORIDE [Concomitant]
  6. ALIZAPRIDE HYDROCHLORIDE (ALIZAPRIDE HYDROCHLORIDE) [Concomitant]
  7. URSODIOL [Concomitant]
  8. SULFAMETHOXAZOLE [Concomitant]
  9. ZOLPIDEM TARTRATE [Concomitant]
  10. FLUCONAZOLE [Concomitant]
  11. RASBURICASE (RASBURICASE) [Concomitant]
  12. FLUCONAZOLE [Concomitant]
  13. EMEND (APREPITANT) [Concomitant]
  14. VALACYCLOVIR [Concomitant]
  15. PENICILLIN V (PHENOXYMETHYLPENICILLIN POTASSIUM) [Concomitant]
  16. PIPERACILLIN SODIUM [Concomitant]
  17. CIPROFLOXACIN [Concomitant]
  18. ACETAMINOPHEN [Concomitant]
  19. CHLORPROMAZINE [Concomitant]
  20. OMEPRAZOLE [Concomitant]
  21. ACETORPHAN (ACETORPHAN) [Concomitant]

REACTIONS (11)
  - APLASIA [None]
  - BRONCHOPULMONARY ASPERGILLOSIS [None]
  - CEREBRAL HAEMORRHAGE [None]
  - CHOLESTASIS [None]
  - HEPATITIS [None]
  - HEPATOTOXICITY [None]
  - HYPERTENSION [None]
  - HYPERTHERMIA [None]
  - PROTHROMBIN TIME PROLONGED [None]
  - STAPHYLOCOCCAL INFECTION [None]
  - THROMBOCYTOPENIA [None]
